FAERS Safety Report 8483645 (Version 2)
Quarter: 2013Q1

REPORT INFORMATION
  Report Type: Spontaneous
  Country: US (occurrence: US)
  Receive Date: 20120329
  Receipt Date: 20130218
  Transmission Date: 20140127
  Serious: Yes (Other)
  Sender: FDA-Public Use
  Company Number: US-ROCHE-798790

PATIENT
  Age: 25 Year
  Sex: Female
  Weight: 56.75 kg

DRUGS (1)
  1. ACCUTANE [Suspect]
     Indication: ACNE
     Route: 048
     Dates: start: 20030812, end: 200402

REACTIONS (6)
  - Colitis ulcerative [Unknown]
  - Gastritis [Unknown]
  - Proctitis [Unknown]
  - Gallbladder disorder [Unknown]
  - Blood triglycerides increased [Unknown]
  - Dermatitis atopic [Unknown]
